FAERS Safety Report 6203930-3 (Version None)
Quarter: 2009Q2

REPORT INFORMATION
  Report Type: 
  Country: None (occurrence: None)
  Receive Date: 20090527
  Receipt Date: 20090515
  Transmission Date: 20091009
  Serious: Yes (Hospitalization)
  Sender: FDA-Public Use
  Company Number: A0785926A

PATIENT
  Age: 56 Year
  Sex: Male
  Weight: 129.5 kg

DRUGS (4)
  1. AVANDAMET [Suspect]
     Dosage: 2MG TWICE PER DAY
     Route: 065
     Dates: start: 20040601, end: 20060101
  2. AVANDIA [Suspect]
     Dosage: 4MG TWICE PER DAY
     Route: 065
     Dates: start: 20060101, end: 20070101
  3. METFORMIN HCL [Concomitant]
     Dates: start: 19950101
  4. DIABETA [Concomitant]
     Dates: start: 20041124

REACTIONS (2)
  - CARDIAC DISORDER [None]
  - CARDIAC FAILURE CONGESTIVE [None]
